FAERS Safety Report 9447783 (Version 1)
Quarter: 2013Q3

REPORT INFORMATION
  Report Type: Spontaneous
  Country: US (occurrence: None)
  Receive Date: 20130807
  Receipt Date: 20130807
  Transmission Date: 20140515
  Serious: Yes (Hospitalization)
  Sender: FDA-Public Use
  Company Number: None

PATIENT
  Sex: Female
  Weight: 77.3 kg

DRUGS (2)
  1. RIBAVIRIN [Suspect]
     Indication: HEPATITIS C
     Dosage: 600MG EVERY AM ORAL ROUTE ; 600MG EVERY PM ORAL ROUTE
     Dates: start: 20130507
  2. INCIVEK [Suspect]
     Indication: HEPATITIS C
     Dosage: 750MG THREE TIMES/DAILY ORAL ROUTE
     Route: 048
     Dates: start: 20130507

REACTIONS (1)
  - Asthenia [None]
